FAERS Safety Report 6721880-0 (Version None)
Quarter: 2010Q2

REPORT INFORMATION
  Report Type: 
  Country: None (occurrence: None)
  Receive Date: 20100512
  Receipt Date: 20100430
  Transmission Date: 20101027
  Serious: Yes (Other)
  Sender: FDA-Public Use
  Company Number: PHHY2010US28592

PATIENT
  Sex: Female

DRUGS (1)
  1. GLEEVEC [Suspect]
     Indication: ACUTE MYELOID LEUKAEMIA (IN REMISSION)
     Dosage: 300 MG DAILY
     Route: 048

REACTIONS (3)
  - CARDIAC DISORDER [None]
  - PALPITATIONS [None]
  - PRURITUS [None]
